FAERS Safety Report 5419484-5 (Version None)
Quarter: 2007Q3

REPORT INFORMATION
  Report Type: 
  Country: None (occurrence: None)
  Receive Date: 20070820
  Receipt Date: 20070809
  Transmission Date: 20080115
  Serious: Yes (Death, Hospitalization)
  Sender: FDA-Public Use
  Company Number: US-GENENTECH-242929

PATIENT
  Sex: Female
  Weight: 65.77 kg

DRUGS (8)
  1. BLINDED BEVACIZUMAB [Suspect]
     Indication: OVARIAN EPITHELIAL CANCER
     Dosage: 15 MG/KG, Q3W
     Route: 042
     Dates: start: 20070420
  2. BLINDED PLACEBO [Suspect]
     Indication: OVARIAN EPITHELIAL CANCER
     Dosage: 15 MG/KG, Q3W
     Route: 042
     Dates: start: 20070420
  3. TAXOL [Suspect]
     Indication: OVARIAN EPITHELIAL CANCER
     Dosage: 175 MG/M2, Q3W
     Route: 042
     Dates: start: 20070329
  4. CARBOPLATIN [Suspect]
     Indication: OVARIAN EPITHELIAL CANCER
     Dosage: 6 AUC, Q3W
     Route: 042
     Dates: start: 20070329
  5. VICODIN [Concomitant]
     Indication: DRUG USE FOR UNKNOWN INDICATION
  6. MARINOL [Concomitant]
     Indication: DRUG USE FOR UNKNOWN INDICATION
  7. PHENERGAN HCL [Concomitant]
     Indication: DRUG USE FOR UNKNOWN INDICATION
  8. ZANTAC 150 [Concomitant]
     Indication: DRUG USE FOR UNKNOWN INDICATION

REACTIONS (8)
  - CYSTITIS [None]
  - DEATH [None]
  - DIARRHOEA [None]
  - HAEMOGLOBIN DECREASED [None]
  - LEUKOPENIA [None]
  - NEUTROPHIL COUNT DECREASED [None]
  - PLATELET COUNT DECREASED [None]
  - SEPTIC SHOCK [None]
